FAERS Safety Report 13624546 (Version 1)
Quarter: 2017Q2

REPORT INFORMATION
  Report Type: Spontaneous
  Country: US (occurrence: US)
  Receive Date: 20170607
  Receipt Date: 20170607
  Transmission Date: 20170830
  Serious: No
  Sender: FDA-Public Use
  Company Number: US-PURDUE-USA-2017-0135898

PATIENT
  Sex: Female

DRUGS (1)
  1. BUTRANS [Suspect]
     Active Substance: BUPRENORPHINE
     Indication: PRODUCT USED FOR UNKNOWN INDICATION
     Dosage: 20 MG/HR, WEEKLY
     Route: 062

REACTIONS (5)
  - Wrong technique in product usage process [Unknown]
  - Product adhesion issue [Recovered/Resolved]
  - Application site burn [Unknown]
  - Application site erosion [Unknown]
  - Application site irritation [Unknown]
